FAERS Safety Report 7253721-X (Version None)
Quarter: 2011Q1

REPORT INFORMATION
  Report Type: 
  Country: None (occurrence: None)
  Receive Date: 20110129
  Receipt Date: 20100129
  Transmission Date: 20110831
  Serious: No
  Sender: FDA-Public Use
  Company Number: US-ABBOTT-10P-163-0623647-00

PATIENT
  Age: 18 Year
  Sex: Female

DRUGS (1)
  1. HUMIRA [Suspect]
     Indication: ACCIDENTAL EXPOSURE
     Route: 058

REACTIONS (1)
  - WRONG TECHNIQUE IN DRUG USAGE PROCESS [None]
